FAERS Safety Report 16362981 (Version 1)
Quarter: 2019Q2

REPORT INFORMATION
  Report Type: Spontaneous
  Country: JP (occurrence: JP)
  Receive Date: 20190528
  Receipt Date: 20190528
  Transmission Date: 20190711
  Serious: Yes (Other)
  Sender: FDA-Public Use
  Company Number: PHJP2019JP005515

PATIENT

DRUGS (1)
  1. PAZOPANIB [Suspect]
     Active Substance: PAZOPANIB
     Indication: METASTATIC RENAL CELL CARCINOMA
     Dosage: 600 MG, UNK
     Route: 048

REACTIONS (7)
  - Metastases to kidney [Unknown]
  - Metastases to pancreas [Unknown]
  - Metastases to breast [Unknown]
  - Hepatic function abnormal [Unknown]
  - Myelopathy [Unknown]
  - Metastases to lung [Unknown]
  - Malignant neoplasm progression [Unknown]
